FAERS Safety Report 4405901-6 (Version None)
Quarter: 2004Q3

REPORT INFORMATION
  Report Type: 
  Country: None (occurrence: None)
  Receive Date: 20040715
  Receipt Date: 20040706
  Transmission Date: 20050211
  Serious: Yes (Hospitalization)
  Sender: FDA-Public Use
  Company Number: HQWYE943808JUL04

PATIENT
  Age: 46 Year
  Sex: Male
  Weight: 69 kg

DRUGS (11)
  1. RAPAMUNE [Suspect]
     Indication: PROPHYLAXIS AGAINST TRANSPLANT REJECTION
     Dosage: 8 MG 1X PER 1 DAY, ORAL
     Route: 048
     Dates: start: 20040203, end: 20040703
  2. LASIX [Concomitant]
  3. CLONIDINE [Concomitant]
  4. PREDNISONE TAB [Concomitant]
  5. PROGRAF [Concomitant]
  6. SULFAMETHOXAZOLE + TRIMETHOPRIM [Concomitant]
  7. LIPITOR [Concomitant]
  8. COZAAR [Concomitant]
  9. DOXAZOSIN (DOXAZOSIN) [Concomitant]
  10. LABETALOL HCL [Concomitant]
  11. HUMULIN (INSULIN HUMAN) [Concomitant]

REACTIONS (14)
  - BLOOD CHLORIDE INCREASED [None]
  - BLOOD CREATININE INCREASED [None]
  - BLOOD POTASSIUM DECREASED [None]
  - BLOOD POTASSIUM INCREASED [None]
  - BLOOD SODIUM DECREASED [None]
  - BLOOD URINE [None]
  - CHILLS [None]
  - GLUCOSE URINE PRESENT [None]
  - IMMUNOSUPPRESSION [None]
  - PCO2 DECREASED [None]
  - PYREXIA [None]
  - URINE KETONE BODY PRESENT [None]
  - VOMITING [None]
  - WHITE BLOOD CELL COUNT INCREASED [None]
